FAERS Safety Report 7668711-2 (Version None)
Quarter: 2011Q3

REPORT INFORMATION
  Report Type: 
  Country: None (occurrence: None)
  Receive Date: 20110808
  Receipt Date: 20110729
  Transmission Date: 20111222
  Serious: Yes (Hospitalization)
  Sender: FDA-Public Use
  Company Number: JP-BAYER-2011-060522

PATIENT
  Age: 63 Year
  Sex: Male
  Weight: 72 kg

DRUGS (4)
  1. NEXAVAR [Suspect]
     Indication: RENAL CELL CARCINOMA
     Dosage: 400 MG, BID
     Route: 048
     Dates: start: 20110621, end: 20110703
  2. ASPIRIN [Concomitant]
     Indication: ARRHYTHMIA
     Dosage: DAILY DOSE 100 MG
     Route: 048
  3. NEXAVAR [Suspect]
     Dosage: DAILY DOSE 400 MG
     Route: 048
     Dates: start: 20110721
  4. TAMBOCOR [Concomitant]
     Indication: ARRHYTHMIA
     Dosage: DAILY DOSE 3 DF
     Route: 048

REACTIONS (4)
  - DRUG ERUPTION [None]
  - PLATELET COUNT DECREASED [None]
  - ATRIAL FIBRILLATION [None]
  - RASH [None]
